FAERS Safety Report 17580009 (Version 1)
Quarter: 2020Q1

REPORT INFORMATION
  Report Type: Spontaneous
  Country: CA (occurrence: CA)
  Receive Date: 20200325
  Receipt Date: 20200325
  Transmission Date: 20200409
  Serious: Yes (Other)
  Sender: FDA-Public Use
  Company Number: CA-PFIZER INC-2020124022

PATIENT
  Sex: Male

DRUGS (7)
  1. REMICADE [Suspect]
     Active Substance: INFLIXIMAB
     Dosage: UNK (THERAPY DURATION: 2 YEARS )
  2. RITUXIMAB. [Suspect]
     Active Substance: RITUXIMAB
     Dosage: UNK (THERAPY DURATION: 3 YEARS )
  3. HYDROXYCHLOROQUINE [Suspect]
     Active Substance: HYDROXYCHLOROQUINE
     Dosage: 200 MG, 2X/DAY (THERAPY DURATION: 9 YEARS)
  4. METHOTREXATE SODIUM. [Suspect]
     Active Substance: METHOTREXATE SODIUM
     Indication: RHEUMATOID ARTHRITIS
     Dosage: 20 MG, WEEKLY (THERAPY DURATION: 7 YEARS )
  5. ENBREL [Suspect]
     Active Substance: ETANERCEPT
     Indication: RHEUMATOID ARTHRITIS
     Dosage: UNK (THERAPY DURATION: 9 MONTHS)
  6. HUMIRA [Suspect]
     Active Substance: ADALIMUMAB
     Dosage: 40 MG, UNK (1 EVERY 2 WEEKS, THERAPY DURATION:  346 DAYS)
     Route: 058
  7. XELJANZ [Concomitant]
     Active Substance: TOFACITINIB CITRATE
     Indication: RHEUMATOID ARTHRITIS
     Dosage: 5 MG, 2X/DAY

REACTIONS (4)
  - Drug ineffective [Unknown]
  - Pulmonary fibrosis [Unknown]
  - Rheumatoid arthritis [Unknown]
  - Synovitis [Unknown]
